FAERS Safety Report 21738404 (Version 1)
Quarter: 2022Q4

REPORT INFORMATION
  Report Type: Report from Study
  Country: CA (occurrence: CA)
  Receive Date: 20221216
  Receipt Date: 20221216
  Transmission Date: 20230112
  Serious: Yes (Death)
  Sender: FDA-Public Use
  Company Number: CA-TEVA-2022-CA-2835718

PATIENT
  Sex: Male

DRUGS (2)
  1. OCTREOTIDE [Suspect]
     Active Substance: OCTREOTIDE
     Indication: Carcinoid tumour
     Dosage: DOSE: 30MILLIGRAM EVERY 4 WEEKS
     Route: 030
     Dates: start: 20220506
  2. SANDA LAR [Concomitant]
     Indication: Product used for unknown indication

REACTIONS (2)
  - Death [Fatal]
  - Hospice care [Unknown]
